FAERS Safety Report 9925758 (Version 1)
Quarter: 2014Q1

REPORT INFORMATION
  Report Type: Spontaneous
  Country: US (occurrence: None)
  Receive Date: 20140220
  Receipt Date: 20140220
  Transmission Date: 20141002
  Serious: Yes (Death)
  Sender: FDA-Public Use
  Company Number: 20140022

PATIENT
  Age: 35 Year
  Sex: Female
  Weight: 97 kg

DRUGS (2)
  1. FENTANYL [Suspect]
  2. ALPRAZOLAM [Suspect]

REACTIONS (3)
  - Toxicity to various agents [None]
  - Accidental death [None]
  - Drug abuse [None]
